FAERS Safety Report 15164901 (Version 2)
Quarter: 2018Q3

REPORT INFORMATION
  Report Type: Spontaneous
  Country: US (occurrence: US)
  Receive Date: 20180719
  Receipt Date: 20180928
  Transmission Date: 20181010
  Serious: Yes (Other)
  Sender: FDA-Public Use
  Company Number: US-BAYER-2018-131363

PATIENT
  Age: 25 Year
  Sex: Female
  Weight: 105.22 kg

DRUGS (2)
  1. PREDNISONE. [Concomitant]
     Active Substance: PREDNISONE
     Route: 048
  2. MIRENA [Suspect]
     Active Substance: LEVONORGESTREL
     Dosage: 20 MCG/24HR, CONT
     Route: 015
     Dates: start: 20140503

REACTIONS (4)
  - Device breakage [Unknown]
  - Complication of device removal [None]
  - Device dislocation [None]
  - Embedded device [None]

NARRATIVE: CASE EVENT DATE: 20180709
